FAERS Safety Report 25413924 (Version 4)
Quarter: 2025Q3

REPORT INFORMATION
  Report Type: Spontaneous
  Country: EU (occurrence: EU)
  Receive Date: 20250609
  Receipt Date: 20250919
  Transmission Date: 20251020
  Serious: Yes (Hospitalization, Other)
  Sender: SANDOZ
  Company Number: EU-CHEPLA-2025006714

PATIENT
  Age: 64 Year
  Sex: Male

DRUGS (14)
  1. BASILIXIMAB [Suspect]
     Active Substance: BASILIXIMAB
     Indication: Heart transplant
     Route: 065
  2. EVEROLIMUS [Suspect]
     Active Substance: EVEROLIMUS
     Indication: Antiviral prophylaxis
     Route: 065
     Dates: start: 202404
  3. EVEROLIMUS [Suspect]
     Active Substance: EVEROLIMUS
     Indication: Pleural effusion
  4. FOSCARNET [Suspect]
     Active Substance: FOSCARNET
     Indication: Antiviral prophylaxis
     Route: 065
     Dates: start: 202404
  5. FOSCARNET [Suspect]
     Active Substance: FOSCARNET
     Indication: Renal impairment
     Route: 065
     Dates: start: 202307
  6. GANCICLOVIR [Suspect]
     Active Substance: GANCICLOVIR
     Route: 065
     Dates: start: 202308
  7. GANCICLOVIR [Suspect]
     Active Substance: GANCICLOVIR
     Indication: Antiviral prophylaxis
     Route: 065
     Dates: start: 202307
  8. MYCOPHENOLATE MOFETIL [Suspect]
     Active Substance: MYCOPHENOLATE MOFETIL
     Indication: Heart transplant
     Route: 065
  9. MARIBAVIR [Suspect]
     Active Substance: MARIBAVIR
     Route: 065
     Dates: start: 202308
  10. MARIBAVIR [Suspect]
     Active Substance: MARIBAVIR
     Indication: Antiviral prophylaxis
     Route: 065
     Dates: start: 202307
  11. MARIBAVIR [Suspect]
     Active Substance: MARIBAVIR
     Route: 065
     Dates: start: 202403
  12. TACROLIMUS [Suspect]
     Active Substance: TACROLIMUS
     Indication: Heart transplant
     Route: 065
  13. VALGANCICLOVIR [Suspect]
     Active Substance: VALGANCICLOVIR
     Indication: Antiviral prophylaxis
     Route: 065
     Dates: start: 202304
  14. VALGANCICLOVIR [Suspect]
     Active Substance: VALGANCICLOVIR
     Route: 065
     Dates: start: 202404

REACTIONS (7)
  - Pneumonia [Unknown]
  - Thrombotic microangiopathy [Recovering/Resolving]
  - Condition aggravated [Recovering/Resolving]
  - Pancytopenia [Unknown]
  - Drug resistance [Unknown]
  - Cytomegalovirus infection [Not Recovered/Not Resolved]
  - Therapeutic product effect incomplete [Unknown]
